FAERS Safety Report 7233255-9 (Version None)
Quarter: 2011Q1

REPORT INFORMATION
  Report Type: 
  Country: None (occurrence: None)
  Receive Date: 20110119
  Receipt Date: 20110113
  Transmission Date: 20110831
  Serious: Yes (Hospitalization)
  Sender: FDA-Public Use
  Company Number: B0693981A

PATIENT
  Sex: Male

DRUGS (1)
  1. AUGMENTIN '125' [Suspect]
     Indication: PHARYNGITIS
     Dosage: 2G PER DAY
     Route: 048
     Dates: start: 20101229, end: 20101229

REACTIONS (2)
  - URTICARIA [None]
  - HYPOTENSION [None]
